FAERS Safety Report 21520038 (Version 4)
Quarter: 2022Q4

REPORT INFORMATION
  Report Type: Report from Study
  Country: JP (occurrence: JP)
  Receive Date: 20221028
  Receipt Date: 20221223
  Transmission Date: 20230113
  Serious: Yes (Death, Other)
  Sender: FDA-Public Use
  Company Number: JP-teijin-202202026_XE_P_1

PATIENT
  Age: 72 Year
  Sex: Male
  Weight: 41 kg

DRUGS (19)
  1. XEOMIN [Suspect]
     Active Substance: INCOBOTULINUMTOXINA
     Indication: Muscle spasticity
     Route: 030
     Dates: start: 20220808, end: 20220808
  2. XEOMIN [Suspect]
     Active Substance: INCOBOTULINUMTOXINA
     Indication: Muscle spasticity
     Route: 030
     Dates: start: 20220808, end: 20220808
  3. XEOMIN [Suspect]
     Active Substance: INCOBOTULINUMTOXINA
     Route: 030
     Dates: start: 20211026, end: 20211026
  4. XEOMIN [Suspect]
     Active Substance: INCOBOTULINUMTOXINA
     Route: 030
     Dates: start: 20220523, end: 20220523
  5. XEOMIN [Suspect]
     Active Substance: INCOBOTULINUMTOXINA
     Route: 030
  6. BENSERAZIDE HYDROCHLORIDE\LEVODOPA [Concomitant]
     Active Substance: BENSERAZIDE HYDROCHLORIDE\LEVODOPA
     Indication: Multiple system atrophy
     Dosage: 6 TABLETS
     Dates: end: 20220910
  7. NEUPRO [Concomitant]
     Active Substance: ROTIGOTINE
     Indication: Multiple system atrophy
     Dosage: 1 DOSAGE FORM
     Route: 003
     Dates: end: 20220910
  8. SYMMETREL [Concomitant]
     Active Substance: AMANTADINE HYDROCHLORIDE
     Indication: Multiple system atrophy
     Dosage: 1 G
     Dates: end: 20220910
  9. RIVOTRIL [Concomitant]
     Active Substance: CLONAZEPAM
     Indication: Multiple system atrophy
     Dosage: 0.5 MG
     Dates: end: 20220910
  10. LANSOPRAZOLE [Concomitant]
     Active Substance: LANSOPRAZOLE
     Indication: Gastrooesophageal reflux disease
     Dosage: 15 MG
     Dates: end: 20220910
  11. CARBOCYSTEINE [Concomitant]
     Active Substance: CARBOCYSTEINE
     Indication: Bronchitis chronic
     Dosage: 3 G
     Dates: end: 20220910
  12. MIDODRINE HYDROCHLORIDE [Concomitant]
     Active Substance: MIDODRINE HYDROCHLORIDE
     Indication: Orthostatic hypotension
     Dosage: 6 MG
     Dates: end: 20220910
  13. BETAMETHASONE DIPROPIONATE [Concomitant]
     Active Substance: BETAMETHASONE DIPROPIONATE
     Indication: Dermatitis contact
     Dosage: 0.2 G
     Route: 003
     Dates: end: 20220910
  14. FLORINEF ACETATE [Concomitant]
     Active Substance: FLUDROCORTISONE ACETATE
     Indication: Adrenal insufficiency
     Dosage: 0.1 MG
     Dates: end: 20220910
  15. KETOPROFEN [Concomitant]
     Active Substance: KETOPROFEN
     Indication: Periarthritis
     Dosage: 2 DOSAGE FORMS
     Route: 003
     Dates: end: 20220910
  16. SODIUM CHLORIDE [Concomitant]
     Active Substance: SODIUM CHLORIDE
     Indication: Hyponatraemia
     Dosage: 3 G
     Dates: end: 20220910
  17. BOTULINUM TOXIN NOS [Concomitant]
     Active Substance: BOTULINUM TOXIN NOS
     Indication: Muscle spasticity
     Dates: start: 2021, end: 2021
  18. BOTULINUM TOXIN NOS [Concomitant]
     Active Substance: BOTULINUM TOXIN NOS
     Indication: Muscle spasticity
  19. MAGNESIUM OXIDE [Concomitant]
     Active Substance: MAGNESIUM OXIDE
     Indication: Constipation
     Dosage: 990 MG
     Dates: end: 2022

REACTIONS (6)
  - Death [Fatal]
  - Depressed level of consciousness [Recovering/Resolving]
  - Jaundice [Recovering/Resolving]
  - Generalised oedema [Recovering/Resolving]
  - Condition aggravated [Recovering/Resolving]
  - Off label use [Unknown]

NARRATIVE: CASE EVENT DATE: 20220101
